FAERS Safety Report 19060411 (Version 3)
Quarter: 2022Q1

REPORT INFORMATION
  Report Type: Report from Study
  Country: US (occurrence: US)
  Receive Date: 20210325
  Receipt Date: 20220330
  Transmission Date: 20220423
  Serious: Yes (Other)
  Sender: FDA-Public Use
  Company Number: US-MYLANLABS-2021M1015393

PATIENT
  Sex: Male
  Weight: 95.25 kg

DRUGS (3)
  1. GLATIRAMER ACETATE [Suspect]
     Active Substance: GLATIRAMER ACETATE
     Indication: Relapsing-remitting multiple sclerosis
     Dosage: 40 MILLIGRAM, 3XW
     Route: 058
  2. GLATIRAMER ACETATE [Suspect]
     Active Substance: GLATIRAMER ACETATE
     Dosage: 40 MILLIGRAM, 3XW
     Route: 058
  3. GLATIRAMER ACETATE [Suspect]
     Active Substance: GLATIRAMER ACETATE
     Dosage: 40 MILLIGRAM, 3XW
     Route: 058

REACTIONS (15)
  - Multiple sclerosis [Unknown]
  - Sleep disorder [Unknown]
  - Feeling abnormal [Unknown]
  - Joint stiffness [Unknown]
  - Skin disorder [Unknown]
  - Muscle disorder [Unknown]
  - Wrong technique in product usage process [Unknown]
  - Injection site discomfort [Recovered/Resolved]
  - Injection site pain [Recovered/Resolved]
  - Fatigue [Unknown]
  - Heart rate decreased [Unknown]
  - Weight increased [Unknown]
  - Injection site erythema [Unknown]
  - Headache [Unknown]
  - Arthralgia [Unknown]
